FAERS Safety Report 12313156 (Version 1)
Quarter: 2016Q2

REPORT INFORMATION
  Report Type: Spontaneous
  Country: US (occurrence: US)
  Receive Date: 20160428
  Receipt Date: 20160428
  Transmission Date: 20160815
  Serious: Yes (Hospitalization)
  Sender: FDA-Public Use
  Company Number: US-FERRINGPH-2016FE01776

PATIENT

DRUGS (6)
  1. DDAVP [Suspect]
     Active Substance: DESMOPRESSIN ACETATE
     Indication: DIABETES INSIPIDUS
     Dosage: UNK, 2 TIMES DAILY
     Route: 058
     Dates: start: 20160417, end: 20160418
  2. DOCUSATE [Concomitant]
     Active Substance: DOCUSATE
  3. MULTIVITAMIN [Concomitant]
     Active Substance: VITAMINS
  4. IRON [Concomitant]
     Active Substance: IRON
  5. RANITIDINE. [Concomitant]
     Active Substance: RANITIDINE
  6. PREDNISOLONE. [Concomitant]
     Active Substance: PREDNISOLONE

REACTIONS (3)
  - Polyuria [Unknown]
  - Diarrhoea [Unknown]
  - Electrolyte imbalance [Unknown]

NARRATIVE: CASE EVENT DATE: 20160417
